FAERS Safety Report 5759432-1 (Version None)
Quarter: 2008Q2

REPORT INFORMATION
  Report Type: 
  Country: None (occurrence: None)
  Receive Date: 20080604
  Receipt Date: 20080604
  Transmission Date: 20081010
  Serious: Yes (Other)
  Sender: FDA-Public Use
  Company Number: None

PATIENT
  Age: 44 Year
  Sex: Male
  Weight: 122.4712 kg

DRUGS (1)
  1. OXAPROZIN [Suspect]
     Indication: PLANTAR FASCIITIS
     Dosage: 1-600 MG TABLETS BY MOUTH
     Route: 048
     Dates: start: 20080506, end: 20080507

REACTIONS (6)
  - BLOOD PRESSURE INCREASED [None]
  - FLUSHING [None]
  - HYPERSENSITIVITY [None]
  - OEDEMA MOUTH [None]
  - PRURITUS [None]
  - SWELLING FACE [None]
